FAERS Safety Report 8462186-1 (Version None)
Quarter: 2012Q2

REPORT INFORMATION
  Report Type: 
  Country: None (occurrence: None)
  Receive Date: 20120625
  Receipt Date: 20120618
  Transmission Date: 20120825
  Serious: Yes (Hospitalization, Other)
  Sender: FDA-Public Use
  Company Number: PHHY2012FR052364

PATIENT
  Sex: Male

DRUGS (4)
  1. LOVENOX [Concomitant]
     Dosage: 4000 IU, UNK
     Route: 058
     Dates: end: 20120423
  2. MICARDIS [Concomitant]
     Dosage: 80 MG, UNK
  3. TASIGNA [Suspect]
     Indication: CHRONIC MYELOID LEUKAEMIA
     Dosage: 400 MG, BID
     Route: 048
     Dates: start: 20080201
  4. ESOMEPRAZOLE [Concomitant]
     Dosage: 1 DF, QD

REACTIONS (8)
  - BLISTER [None]
  - FOOT DEFORMITY [None]
  - ABSCESS [None]
  - ARTERIAL STENOSIS [None]
  - IMPAIRED HEALING [None]
  - NECROSIS [None]
  - BLOOD CHOLESTEROL DECREASED [None]
  - GLYCOSYLATED HAEMOGLOBIN DECREASED [None]
